FAERS Safety Report 10255718 (Version 1)
Quarter: 2014Q2

REPORT INFORMATION
  Report Type: Spontaneous
  Country: US (occurrence: US)
  Receive Date: 20140624
  Receipt Date: 20140624
  Transmission Date: 20141212
  Serious: Yes (Hospitalization)
  Sender: FDA-Public Use
  Company Number: US-ASTRAZENECA-2014SE44849

PATIENT
  Age: 15 Year
  Sex: Male

DRUGS (1)
  1. ARIMIDEX [Suspect]
     Indication: GROWTH HORMONE DEFICIENCY
     Route: 048
     Dates: start: 20140428

REACTIONS (2)
  - Heart transplant rejection [Unknown]
  - Off label use [Unknown]
